FAERS Safety Report 10346088 (Version 3)
Quarter: 2014Q3

REPORT INFORMATION
  Report Type: Report from Study
  Country: US (occurrence: US)
  Receive Date: 20140728
  Receipt Date: 20140903
  Transmission Date: 20150326
  Serious: Yes (Hospitalization)
  Sender: FDA-Public Use
  Company Number: US-ABBVIE-14K-163-1263200-00

PATIENT
  Age: 40 Year
  Sex: Female

DRUGS (19)
  1. ELAVIL [Concomitant]
     Active Substance: AMITRIPTYLINE HYDROCHLORIDE
     Indication: ANXIETY
     Dosage: IN PM
  2. OXYIR [Concomitant]
     Active Substance: OXYCODONE HYDROCHLORIDE
     Indication: PAIN
     Dosage: EVERY 4-6 HOURS
  3. HUMIRA [Suspect]
     Active Substance: ADALIMUMAB
     Dates: start: 20140709, end: 20140709
  4. UNKNOWN MEDICATIONS [Suspect]
     Active Substance: UNSPECIFIED INGREDIENT
     Indication: PRODUCT USED FOR UNKNOWN INDICATION
  5. ATIVAN [Concomitant]
     Active Substance: LORAZEPAM
     Indication: ANXIETY
     Dosage: EVERY SIX HOURS AS NEEDED, 2 MG AT HS
  6. ATIVAN [Concomitant]
     Active Substance: LORAZEPAM
     Indication: INSOMNIA
     Dosage: IN PM
  7. DELZICOL [Suspect]
     Active Substance: MESALAMINE
  8. PURINETHOL [Concomitant]
     Active Substance: MERCAPTOPURINE
     Indication: CROHN^S DISEASE
     Dosage: IN AM
  9. HUMIRA [Suspect]
     Active Substance: ADALIMUMAB
     Indication: CROHN^S DISEASE
     Dates: start: 20140623, end: 20140623
  10. HUMIRA [Suspect]
     Active Substance: ADALIMUMAB
  11. PREDNISONE. [Concomitant]
     Active Substance: PREDNISONE
     Indication: PRODUCT USED FOR UNKNOWN INDICATION
     Dosage: IN AM
  12. PROTONIX [Concomitant]
     Active Substance: PANTOPRAZOLE SODIUM
     Indication: DYSPEPSIA
     Dosage: IN AM
  13. DELZICOL [Suspect]
     Active Substance: MESALAMINE
     Indication: CROHN^S DISEASE
  14. PREDNISONE. [Concomitant]
     Active Substance: PREDNISONE
     Dosage: IN AM
  15. REMERON [Concomitant]
     Active Substance: MIRTAZAPINE
     Indication: INSOMNIA
  16. DILAUDID [Suspect]
     Active Substance: HYDROMORPHONE HYDROCHLORIDE
     Indication: PRODUCT USED FOR UNKNOWN INDICATION
  17. REMERON [Concomitant]
     Active Substance: MIRTAZAPINE
     Indication: ANXIETY
     Dosage: IN HS
  18. BIOTENE [Concomitant]
     Active Substance: SODIUM MONOFLUOROPHOSPHATE
     Indication: DRY MOUTH
  19. MERCAPTOPURINE. [Concomitant]
     Active Substance: MERCAPTOPURINE
     Indication: CROHN^S DISEASE

REACTIONS (20)
  - Diaphragmalgia [Unknown]
  - Abdominal pain upper [Unknown]
  - Nausea [Unknown]
  - Anxiety [Unknown]
  - Menorrhagia [Unknown]
  - Inappropriate schedule of drug administration [Recovered/Resolved]
  - Lethargy [Unknown]
  - Acne [Unknown]
  - Haemorrhagic disorder [Unknown]
  - Injection site pain [Unknown]
  - Gastric dilatation [Not Recovered/Not Resolved]
  - Weight increased [Not Recovered/Not Resolved]
  - Alopecia [Not Recovered/Not Resolved]
  - Rash [Unknown]
  - Muscular weakness [Unknown]
  - Insomnia [Unknown]
  - Cheilitis [Not Recovered/Not Resolved]
  - Headache [Unknown]
  - Tobacco user [Not Recovered/Not Resolved]
  - Diarrhoea [Not Recovered/Not Resolved]

NARRATIVE: CASE EVENT DATE: 2014
